FAERS Safety Report 5166200-0 (Version None)
Quarter: 2006Q4

REPORT INFORMATION
  Report Type: 
  Country: None (occurrence: None)
  Receive Date: 20060830
  Receipt Date: 20060413
  Transmission Date: 20070319
  Serious: No
  Sender: FDA-Public Use
  Company Number: 224113

PATIENT
  Age: 21 Year
  Sex: Male

DRUGS (8)
  1. XOLAIR [Suspect]
     Indication: ASTHMA
     Dosage: 375 MG , Q2W, SUBCUTANEOUS
     Route: 058
     Dates: start: 20060118
  2. SINGULAIR [Concomitant]
  3. ADVAIR DISKUS 100/50 [Concomitant]
  4. ALBUTEROL INHALER (ALBUTEROL/ALBUTEROL SULFATE) [Concomitant]
  5. ALBUTEROL NEBULIZER (ALBUTEROL/ALBUTEROL SULFATE) [Concomitant]
  6. ATROVENT [Concomitant]
  7. ACIPHEX [Concomitant]
  8. FLONASE [Concomitant]

REACTIONS (1)
  - EXCESSIVE EYE BLINKING [None]
